FAERS Safety Report 12574182 (Version 1)
Quarter: 2016Q3

REPORT INFORMATION
  Report Type: Spontaneous
  Country: IL (occurrence: IL)
  Receive Date: 20160720
  Receipt Date: 20160720
  Transmission Date: 20161109
  Serious: Yes (Death, Hospitalization, Other)
  Sender: FDA-Public Use
  Company Number: IL-ACTELION-A-CH2016-137413

PATIENT
  Age: 76 Year
  Sex: Female

DRUGS (9)
  1. SPIRONOLACTON [Concomitant]
     Active Substance: SPIRONOLACTONE
  2. OPSUMIT [Suspect]
     Active Substance: MACITENTAN
     Indication: PULMONARY ARTERIAL HYPERTENSION
     Dosage: 10 MG, QD
     Route: 048
     Dates: start: 201603, end: 20160527
  3. SILDENAFIL. [Concomitant]
     Active Substance: SILDENAFIL
     Indication: PULMONARY ARTERIAL HYPERTENSION
     Dosage: 20 MG, TID
     Route: 048
     Dates: start: 201504
  4. METFORMIN [Concomitant]
     Active Substance: METFORMIN HYDROCHLORIDE
  5. SIMVASTATIN. [Concomitant]
     Active Substance: SIMVASTATIN
  6. ELTROXIN [Concomitant]
     Active Substance: LEVOTHYROXINE
  7. FUSID [Concomitant]
     Active Substance: FUROSEMIDE
  8. HYDROXYUREA. [Concomitant]
     Active Substance: HYDROXYUREA
  9. DABIGATRAN [Concomitant]
     Active Substance: DABIGATRAN

REACTIONS (23)
  - Lung infection [Unknown]
  - Alanine aminotransferase increased [Recovered/Resolved with Sequelae]
  - Gamma-glutamyltransferase increased [Recovered/Resolved with Sequelae]
  - Encephalopathy [Unknown]
  - White blood cell count increased [Unknown]
  - Hepatic congestion [Unknown]
  - Hyperbilirubinaemia [Unknown]
  - Pyrexia [Unknown]
  - C-reactive protein increased [Unknown]
  - International normalised ratio increased [Unknown]
  - Right ventricular failure [Unknown]
  - Aspartate aminotransferase increased [Recovered/Resolved with Sequelae]
  - Antinuclear antibody positive [Unknown]
  - Dyspnoea [Unknown]
  - Hypotension [Unknown]
  - Blood alkaline phosphatase increased [Recovered/Resolved with Sequelae]
  - Prothrombin time prolonged [Unknown]
  - Septic shock [Fatal]
  - Acute respiratory failure [Unknown]
  - Liver function test increased [Recovered/Resolved with Sequelae]
  - Blood albumin decreased [Unknown]
  - Clostridium difficile colitis [Unknown]
  - Jaundice [Unknown]

NARRATIVE: CASE EVENT DATE: 20160524
